FAERS Safety Report 14022368 (Version 1)
Quarter: 2017Q3

REPORT INFORMATION
  Report Type: Spontaneous
  Country: TR (occurrence: TR)
  Receive Date: 20170928
  Receipt Date: 20170928
  Transmission Date: 20171128
  Serious: Yes (Other)
  Sender: FDA-Public Use
  Company Number: TR-009507513-1709TUR009954

PATIENT
  Age: 7 Month
  Sex: Male
  Weight: 8 kg

DRUGS (5)
  1. SEVOFLURANE. [Concomitant]
     Active Substance: SEVOFLURANE
     Dosage: 1 MAC
  2. THIOPENTAL SODIUM. [Concomitant]
     Active Substance: THIOPENTAL SODIUM
     Dosage: 40 MG, UNK
  3. FENTANYL. [Concomitant]
     Active Substance: FENTANYL
     Dosage: 8 MICROGRAM, UNK
  4. SUGAMMADEX SODIUM [Suspect]
     Active Substance: SUGAMMADEX SODIUM
     Dosage: 36 MG (4.5MG/KG), ONCE
  5. ROCURONIUM BROMIDE. [Concomitant]
     Active Substance: ROCURONIUM BROMIDE
     Dosage: 5 MG, UNK

REACTIONS (3)
  - Drug administered to patient of inappropriate age [Unknown]
  - Muscle rigidity [Recovered/Resolved]
  - Incorrect dosage administered [Unknown]
